FAERS Safety Report 8485745-9 (Version None)
Quarter: 2012Q3

REPORT INFORMATION
  Report Type: 
  Country: None (occurrence: None)
  Receive Date: 20120703
  Receipt Date: 20120626
  Transmission Date: 20120928
  Serious: Yes (Other)
  Sender: FDA-Public Use
  Company Number: GB-ROCHE-1082974

PATIENT
  Age: 57 Year

DRUGS (1)
  1. HERCEPTIN [Suspect]
     Indication: METASTATIC NEOPLASM

REACTIONS (1)
  - DISEASE PROGRESSION [None]
